FAERS Safety Report 21311506 (Version 1)
Quarter: 2022Q3

REPORT INFORMATION
  Report Type: Spontaneous
  Country: CN (occurrence: None)
  Receive Date: 20220909
  Receipt Date: 20220909
  Transmission Date: 20221027
  Serious: Yes (Hospitalization, Other)
  Sender: FDA-Public Use
  Company Number: 2022A308474

PATIENT
  Age: 84 Year
  Sex: Male
  Weight: 74 kg

DRUGS (2)
  1. TICAGRELOR [Suspect]
     Active Substance: TICAGRELOR
     Indication: Platelet aggregation inhibition
     Route: 048
     Dates: start: 20220108, end: 20220112
  2. INDOBUFEN [Suspect]
     Active Substance: INDOBUFEN
     Indication: Platelet aggregation inhibition
     Route: 048
     Dates: start: 20220112, end: 20220112

REACTIONS (2)
  - Anaemia [Unknown]
  - Upper gastrointestinal haemorrhage [Unknown]

NARRATIVE: CASE EVENT DATE: 20220112
